FAERS Safety Report 8862399 (Version 2)
Quarter: 2013Q1

REPORT INFORMATION
  Report Type: Spontaneous
  Country: US (occurrence: US)
  Receive Date: 20121026
  Receipt Date: 20130102
  Transmission Date: 20140127
  Serious: Yes (Hospitalization, Congenital Anomaly, Other)
  Sender: FDA-Public Use
  Company Number: US-PFIZER INC-2012263636

PATIENT
  Sex: Female

DRUGS (39)
  1. ZOLOFT [Suspect]
     Indication: DEPRESSION
     Dosage: 50MG/100MG
     Route: 064
     Dates: start: 2000, end: 2007
  2. PRENATAL VITAMINS [Concomitant]
     Dosage: UNK
     Route: 064
  3. ACETAMINOPHEN W/CODEINE [Concomitant]
     Dosage: UNK
     Route: 064
  4. PENICILLIN [Concomitant]
     Dosage: UNK
     Route: 064
  5. GENTAMICIN [Concomitant]
     Dosage: UNK
     Route: 064
  6. EFFEXOR [Concomitant]
     Dosage: UNK
     Route: 064
  7. LOW-OGESTREL [Concomitant]
     Dosage: UNK
     Route: 064
  8. LACTATED RINGERS [Concomitant]
     Dosage: UNK
     Route: 064
  9. BRETHINE [Concomitant]
     Dosage: UNK
     Route: 064
  10. FENTANYL [Concomitant]
     Dosage: UNK
     Route: 064
  11. XYLOCAINE [Concomitant]
     Dosage: UNK
     Route: 064
  12. CYTOTEC [Concomitant]
     Dosage: UNK
     Route: 064
  13. PHENERGAN [Concomitant]
     Dosage: UNK
     Route: 064
  14. TYLENOL [Concomitant]
     Dosage: UNK
     Route: 064
  15. DERMOPLAST [Concomitant]
     Dosage: UNK
     Route: 064
  16. VICOPROFEN [Concomitant]
     Dosage: UNK
     Route: 064
  17. PEPCID [Concomitant]
     Dosage: UNK
     Route: 064
  18. PITOCIN [Concomitant]
     Dosage: UNK
     Route: 064
  19. LIDOCAINE [Concomitant]
     Dosage: UNK
     Route: 064
  20. IBUPROFEN [Concomitant]
     Dosage: UNK
     Route: 064
  21. LEXAPRO [Concomitant]
     Dosage: 10 MG, 1X/DAY
     Route: 064
  22. HYDROCODONE [Concomitant]
     Dosage: UNK
     Route: 064
  23. FLUOXETINE [Concomitant]
     Dosage: UNK
     Route: 064
  24. NITROFURANTOIN [Concomitant]
     Dosage: UNK
     Route: 064
  25. OXYCODONE [Concomitant]
     Dosage: UNK
     Route: 064
  26. SERTRALINE [Concomitant]
     Dosage: UNK
     Route: 064
  27. OXYTOCIN [Concomitant]
     Dosage: UNK
     Route: 064
  28. BUPIVACAINE [Concomitant]
     Dosage: UNK
     Route: 064
  29. EPHEDRINE [Concomitant]
     Dosage: UNK
     Route: 064
  30. MARCAINE [Concomitant]
     Dosage: UNK
     Route: 064
  31. STADOL [Concomitant]
     Dosage: UNK
     Route: 064
  32. ANZEMET [Concomitant]
     Dosage: UNK
     Route: 064
  33. MAALOX [Concomitant]
     Dosage: UNK
     Route: 064
  34. PERCOCET [Concomitant]
     Dosage: UNK
     Route: 064
  35. METOCLOPRAMIDE [Concomitant]
     Dosage: UNK
     Route: 064
  36. BICITRA [Concomitant]
     Dosage: UNK
     Route: 064
  37. DIPRIVAN [Concomitant]
     Dosage: UNK
     Route: 064
  38. DEXAMETHASONE [Concomitant]
     Dosage: UNK
     Route: 064
  39. PROZAC [Concomitant]
     Dosage: 20 MG, 1X/DAY
     Route: 064

REACTIONS (8)
  - Maternal exposure timing unspecified [Unknown]
  - Fallot^s tetralogy [Unknown]
  - Ventricular septal defect [Unknown]
  - Pulmonary artery stenosis congenital [Unknown]
  - Double outlet right ventricle [Unknown]
  - Atrial septal defect [Unknown]
  - Congenital anomaly [Unknown]
  - Pulmonary vascular disorder [Unknown]
